FAERS Safety Report 6361181-6 (Version None)
Quarter: 2009Q3

REPORT INFORMATION
  Report Type: 
  Country: None (occurrence: None)
  Receive Date: 20090915
  Receipt Date: 20090915
  Transmission Date: 20100115
  Serious: Yes (Life-Threatening)
  Sender: FDA-Public Use
  Company Number: None

PATIENT
  Age: 31 Year
  Sex: Female
  Weight: 97.0698 kg

DRUGS (1)
  1. NYQUIL COLD + FLU VICKS [Suspect]
     Indication: NASOPHARYNGITIS
     Dosage: 2 GEL CAPS
     Dates: start: 20090910, end: 20090911

REACTIONS (1)
  - ANAPHYLACTIC SHOCK [None]
